FAERS Safety Report 6719142-0 (Version None)
Quarter: 2010Q2

REPORT INFORMATION
  Report Type: 
  Country: None (occurrence: None)
  Receive Date: 20100507
  Receipt Date: 20100427
  Transmission Date: 20101027
  Serious: Yes (Hospitalization)
  Sender: FDA-Public Use
  Company Number: A-US2010-36105

PATIENT
  Age: 69 Year
  Sex: Female

DRUGS (2)
  1. TRACLEER [Suspect]
     Indication: PULMONARY ARTERIAL HYPERTENSION
     Dosage: ORAL
     Route: 048
     Dates: start: 20091123
  2. CALCIUM CHANNEL BLOCKERS [Concomitant]

REACTIONS (3)
  - HEART RATE DECREASED [None]
  - MALAISE [None]
  - MEDICAL DEVICE COMPLICATION [None]
